APPROVED DRUG PRODUCT: AMOXICILLIN
Active Ingredient: AMOXICILLIN
Strength: 125MG
Dosage Form/Route: TABLET, CHEWABLE;ORAL
Application: A064013 | Product #002
Applicant: TEVA PHARMACEUTICALS USA INC
Approved: Sep 11, 1995 | RLD: No | RS: No | Type: RX